FAERS Safety Report 6080209-4 (Version None)
Quarter: 2009Q1

REPORT INFORMATION
  Report Type: 
  Country: None (occurrence: None)
  Receive Date: 20090217
  Receipt Date: 20090206
  Transmission Date: 20090719
  Serious: Yes (Other)
  Sender: FDA-Public Use
  Company Number: US-SANOFI-SYNTHELABO-A03200900562

PATIENT
  Age: 81 Year
  Sex: Male

DRUGS (4)
  1. PLAVIX [Suspect]
     Indication: MYOCARDIAL INFARCTION
     Route: 048
     Dates: start: 19950101, end: 20080101
  2. PLAVIX [Suspect]
     Indication: CEREBROVASCULAR ACCIDENT
     Route: 048
     Dates: start: 19950101, end: 20080101
  3. PLAVIX [Suspect]
     Route: 048
     Dates: start: 20090205
  4. PLAVIX [Suspect]
     Route: 048
     Dates: start: 20090205

REACTIONS (1)
  - THROMBOSIS [None]
